FAERS Safety Report 24341326 (Version 2)
Quarter: 2024Q4

REPORT INFORMATION
  Report Type: Spontaneous
  Country: JP (occurrence: JP)
  Receive Date: 20240920
  Receipt Date: 20241223
  Transmission Date: 20250114
  Serious: Yes (Other)
  Sender: JOHNSON AND JOHNSON
  Company Number: JP-MTPC-MTPC2024-0019237

PATIENT
  Age: 0 Day
  Sex: Male

DRUGS (7)
  1. CANAGLIFLOZIN [Suspect]
     Active Substance: CANAGLIFLOZIN
     Indication: Type 2 diabetes mellitus
     Dosage: 100 MILLIGRAM, QD
     Route: 064
     Dates: start: 2020, end: 20230324
  2. METGLUCO [Concomitant]
     Active Substance: METFORMIN HYDROCHLORIDE
     Indication: Type 2 diabetes mellitus
     Dosage: UNK
     Route: 064
     Dates: start: 2020, end: 20230324
  3. HUMALOG [Concomitant]
     Active Substance: INSULIN LISPRO
     Indication: Type 2 diabetes mellitus
     Dosage: 6.5 IN THE MORNING, 6 IN THE AFTERNOON, 7.5 IN THE EVENING, TID
     Route: 064
     Dates: start: 20230330
  4. HUMALOG [Concomitant]
     Active Substance: INSULIN LISPRO
     Dosage: 4.5 IN THE MORNING, 3.5 IN THE AFTERNOON, 5 IN THE EVENING, TID
     Route: 064
     Dates: end: 20240228
  5. LEVEMIR [Concomitant]
     Active Substance: INSULIN DETEMIR
     Indication: Type 2 diabetes mellitus
     Dosage: 8 INTERNATIONAL UNIT, QD
     Route: 064
     Dates: start: 20230330
  6. LEVEMIR [Concomitant]
     Active Substance: INSULIN DETEMIR
     Dosage: 4 INTERNATIONAL UNIT, QD
     Route: 064
     Dates: end: 20240228
  7. HERBALS [Concomitant]
     Active Substance: HERBALS
     Indication: Oedema
     Dosage: 1 DOSAGE FORM, TID
     Route: 064
     Dates: start: 20230524, end: 20230806

REACTIONS (5)
  - Infantile apnoea [Recovered/Resolved]
  - Hypoglycaemia neonatal [Recovered/Resolved]
  - Hydrocele [Recovered/Resolved]
  - Jaundice neonatal [Recovering/Resolving]
  - Foetal exposure during pregnancy [Unknown]

NARRATIVE: CASE EVENT DATE: 20231002
